FAERS Safety Report 9572860 (Version 1)
Quarter: 2013Q3

REPORT INFORMATION
  Report Type: Spontaneous
  Country: US (occurrence: None)
  Receive Date: 20130930
  Receipt Date: 20130930
  Transmission Date: 20140515
  Serious: Yes (Other)
  Sender: FDA-Public Use
  Company Number: None

PATIENT
  Age: 54 Year
  Sex: Female
  Weight: 147.87 kg

DRUGS (2)
  1. SYMBICORT [Suspect]
     Dosage: 2 INHALATIONS, RESPIRATORY
     Route: 055
     Dates: start: 20130802, end: 20130927
  2. PROAIR [Suspect]
     Indication: ASTHMA
     Dosage: 2 INHALATIONS, RESPIRATORY
     Route: 055

REACTIONS (1)
  - Asthma [None]
